FAERS Safety Report 4425386-3 (Version None)
Quarter: 2004Q3

REPORT INFORMATION
  Report Type: 
  Country: None (occurrence: None)
  Receive Date: 20040809
  Receipt Date: 20040723
  Transmission Date: 20050211
  Serious: Yes (Other)
  Sender: FDA-Public Use
  Company Number: A-US2004-06946

PATIENT
  Age: 70 Year
  Sex: Female

DRUGS (2)
  1. TRACLEER [Suspect]
     Indication: PULMONARY HYPERTENSION
     Dosage: ORAL
     Route: 048
  2. IMURAN [Suspect]

REACTIONS (4)
  - APLASTIC ANAEMIA [None]
  - LIVER FUNCTION TEST NORMAL [None]
  - PANCYTOPENIA [None]
  - PARANEOPLASTIC SYNDROME [None]
